FAERS Safety Report 8424354-4 (Version None)
Quarter: 2012Q2

REPORT INFORMATION
  Report Type: 
  Country: None (occurrence: None)
  Receive Date: 20120608
  Receipt Date: 20110816
  Transmission Date: 20120825
  Serious: No
  Sender: FDA-Public Use
  Company Number: US-ASTRAZENECA-2011SE41358

PATIENT
  Sex: Male

DRUGS (3)
  1. PULMICORT FLEXHALER [Suspect]
     Indication: CHRONIC OBSTRUCTIVE PULMONARY DISEASE
     Route: 055
     Dates: start: 20101201
  2. COMBIVENT [Concomitant]
     Indication: CHRONIC OBSTRUCTIVE PULMONARY DISEASE
     Dosage: QID
  3. NEBULIZER [Concomitant]
     Dosage: PRN

REACTIONS (3)
  - PRODUCT TASTE ABNORMAL [None]
  - BORDERLINE GLAUCOMA [None]
  - TOTAL LUNG CAPACITY DECREASED [None]
